FAERS Safety Report 8823156 (Version 1)
Quarter: 2012Q4

REPORT INFORMATION
  Report Type: 
  Country: US (occurrence: US)
  Receive Date: 20121003
  Receipt Date: 20121003
  Transmission Date: 20130627
  Serious: No
  Sender: FDA-Public Use
  Company Number: US-PFIZER INC-2012244026

PATIENT
  Age: 42 Year
  Sex: Female
  Weight: 92.52 kg

DRUGS (12)
  1. LYRICA [Suspect]
     Indication: PAIN
     Dosage: 50 mg (2 x 25 mg capsule), unknown frequency
     Route: 048
     Dates: start: 2008
  2. LYRICA [Suspect]
     Indication: NEURALGIA
     Dosage: 100 mg, UNK
     Route: 048
     Dates: end: 2009
  3. LYRICA [Suspect]
     Indication: FIBROMYALGIA
  4. DICYCLOMINE HYDROCHLORIDE [Concomitant]
     Indication: ABDOMINAL PAIN UPPER
     Dosage: 10 mg, 4x/day
  5. ZANTAC [Concomitant]
     Indication: GASTROOESOPHAGEAL REFLUX DISEASE
     Dosage: 300 mg, 2x/day
  6. LEVOXYL [Concomitant]
     Indication: THYROID DISORDER
     Dosage: 0.1 mg, daily
  7. CARISOPRODOL [Concomitant]
     Indication: MUSCLE RELAXANT THERAPY
     Dosage: 350 mg, 4x/day
  8. CARISOPRODOL [Concomitant]
     Indication: FIBROMYALGIA
  9. OXYCODONE/PARACETAMOL [Concomitant]
     Indication: BACK PAIN
     Dosage: 7.5/500 mg, 3x/day
  10. ALPRAZOLAM [Concomitant]
     Indication: PANIC ATTACK
     Dosage: 0.5 mg, 3x/day
  11. ALPRAZOLAM [Concomitant]
     Indication: ANXIETY
  12. CYANOCOBALAMIN [Concomitant]
     Indication: VITAMIN SUPPLEMENTATION
     Dosage: 0.2 ml, every 14 days
     Route: 030

REACTIONS (8)
  - Withdrawal syndrome [Recovered/Resolved]
  - Malaise [Recovered/Resolved]
  - Vomiting [Recovered/Resolved]
  - Diarrhoea [Recovered/Resolved]
  - Nausea [Recovered/Resolved]
  - Feeling abnormal [Recovered/Resolved]
  - Influenza [Recovered/Resolved]
  - Malaise [Recovered/Resolved]
